FAERS Safety Report 17910380 (Version 1)
Quarter: 2020Q2

REPORT INFORMATION
  Report Type: Spontaneous
  Country: US (occurrence: US)
  Receive Date: 20200617
  Receipt Date: 20200617
  Transmission Date: 20200714
  Serious: No
  Sender: FDA-Public Use
  Company Number: US-BAXTER-2020BAX012195

PATIENT
  Age: 19 Year
  Sex: Female

DRUGS (4)
  1. PENICILLIN G POTASSIUM INJECTION, USP [Suspect]
     Active Substance: PENICILLIN G POTASSIUM
     Indication: INFECTION PROPHYLAXIS
     Dosage: 3 MILLION UNITS IN 50 ML, FIRST DOSE AT 01:59 PM
     Route: 042
     Dates: start: 20200528, end: 20200528
  2. PENICILLIN G POTASSIUM INJECTION, USP [Suspect]
     Active Substance: PENICILLIN G POTASSIUM
     Dosage: 3 MILLION UNITS IN 50 ML, SECOND DOSE AT 06:04 PM
     Route: 042
     Dates: start: 20200528, end: 20200528
  3. MORPHINE [Suspect]
     Active Substance: MORPHINE
     Dosage: BETWEEN 2 DOSES OF PENICILLIN G POTASSIUM 3 MILLION UNITS IN 50 ML
     Route: 030
     Dates: start: 20200528
  4. MORPHINE [Suspect]
     Active Substance: MORPHINE
     Indication: PRODUCT USED FOR UNKNOWN INDICATION
     Dosage: BETWEEN 2 DOSES OF PENICILLIN G POTASSIUM 3 MILLION UNITS IN 50 ML
     Route: 042
     Dates: start: 20200528

REACTIONS (3)
  - Incorrect drug administration rate [Unknown]
  - Infusion site pain [Recovered/Resolved]
  - Exposure during pregnancy [Unknown]

NARRATIVE: CASE EVENT DATE: 20200528
